FAERS Safety Report 10246521 (Version 1)
Quarter: 2014Q2

REPORT INFORMATION
  Report Type: Spontaneous
  Country: US (occurrence: US)
  Receive Date: 20140619
  Receipt Date: 20140619
  Transmission Date: 20141212
  Serious: Yes (Other)
  Sender: FDA-Public Use
  Company Number: US-BAYER-2014-090476

PATIENT
  Age: 36 Year
  Sex: Female

DRUGS (1)
  1. MIRENA [Suspect]
     Indication: CONTRACEPTION
     Dosage: 20 MCG/24HR, CONT
     Route: 015
     Dates: start: 2011

REACTIONS (4)
  - Genital haemorrhage [Recovered/Resolved]
  - Genital haemorrhage [Not Recovered/Not Resolved]
  - Amenorrhoea [Recovered/Resolved]
  - Feeling abnormal [Not Recovered/Not Resolved]
